FAERS Safety Report 4535300-8 (Version None)
Quarter: 2004Q4

REPORT INFORMATION
  Report Type: 
  Country: None (occurrence: None)
  Receive Date: 20041214
  Receipt Date: 20041011
  Transmission Date: 20050328
  Serious: No
  Sender: FDA-Public Use
  Company Number: 2004238132US

PATIENT
  Age: 44 Year
  Sex: Female
  Weight: 163.3 kg

DRUGS (7)
  1. BEXTRA [Suspect]
     Indication: ARTHRITIS
     Dosage: 10 MG, QD, UNK
     Route: 065
     Dates: start: 20041004, end: 20041010
  2. SKELAXIN [Suspect]
     Indication: SCIATICA
     Dosage: 800 UNK
     Route: 065
  3. TYLENOL [Suspect]
     Indication: ARTHRITIS
     Dosage: UNK, PRN
     Dates: end: 20041010
  4. ATENOLOL [Concomitant]
  5. COUMADIN [Concomitant]
  6. VITAMIN B6 [Concomitant]
  7. XANAX [Concomitant]

REACTIONS (2)
  - DRUG INTERACTION [None]
  - PALPITATIONS [None]
